FAERS Safety Report 24817325 (Version 7)
Quarter: 2025Q4

REPORT INFORMATION
  Report Type: Report from Study
  Country: US (occurrence: US)
  Receive Date: 20250108
  Receipt Date: 20251204
  Transmission Date: 20260117
  Serious: Yes (Hospitalization, Other)
  Sender: TAKEDA
  Company Number: US-PAREXEL-2021-KAM-US003314

PATIENT
  Age: 58 Year
  Sex: Female
  Weight: 120 kg

DRUGS (2)
  1. GLASSIA [Suspect]
     Active Substance: .ALPHA.1-PROTEINASE INHIBITOR HUMAN
     Indication: Alpha-1 antitrypsin deficiency
     Dosage: 90 MILLIGRAM/KILOGRAM
  2. GLASSIA [Suspect]
     Active Substance: .ALPHA.1-PROTEINASE INHIBITOR HUMAN

REACTIONS (8)
  - Bronchiectasis [Unknown]
  - Cardiac failure congestive [Unknown]
  - Dyspnoea [Unknown]
  - Device issue [Unknown]
  - Insurance issue [Recovering/Resolving]
  - Product dose omission issue [Unknown]
  - Laryngitis [Unknown]
  - Cough [Unknown]
